FAERS Safety Report 4762958-0 (Version None)
Quarter: 2005Q3

REPORT INFORMATION
  Report Type: 
  Country: None (occurrence: None)
  Receive Date: 20050826
  Receipt Date: 20041101
  Transmission Date: 20060218
  Serious: Yes (Other)
  Sender: FDA-Public Use
  Company Number: USA-2004-0017473

PATIENT
  Age: 50 Year
  Sex: Male

DRUGS (3)
  1. OXYCONTIN [Suspect]
     Indication: PAIN
     Dosage: 360 MG, SEE TEXT
  2. OXYCODONE HCL [Suspect]
     Indication: PAIN
     Dosage: 30 MG, SEE TEXT
  3. HERBAL PREPARATION [Concomitant]

REACTIONS (9)
  - ARTHRALGIA [None]
  - DRUG WITHDRAWAL SYNDROME [None]
  - FEELING JITTERY [None]
  - HALLUCINATION [None]
  - HYPERHIDROSIS [None]
  - INSOMNIA [None]
  - PAIN [None]
  - PANIC DISORDER [None]
  - POLYSUBSTANCE ABUSE [None]
